FAERS Safety Report 10386170 (Version 1)
Quarter: 2014Q3

REPORT INFORMATION
  Report Type: Report from Study
  Country: US (occurrence: US)
  Receive Date: 20140814
  Receipt Date: 20140814
  Transmission Date: 20150326
  Serious: No
  Sender: FDA-Public Use
  Company Number: US-ALEXION-A200901433

PATIENT
  Sex: Female

DRUGS (1)
  1. SOLIRIS [Suspect]
     Active Substance: ECULIZUMAB
     Indication: PAROXYSMAL NOCTURNAL HAEMOGLOBINURIA
     Dosage: UNK
     Route: 042

REACTIONS (8)
  - Gastroenteritis viral [Unknown]
  - Influenza [Unknown]
  - Muscle spasms [Unknown]
  - Migraine [Unknown]
  - Dehydration [Unknown]
  - Depressed mood [Unknown]
  - Chromaturia [Unknown]
  - Myalgia [Unknown]
